FAERS Safety Report 18681386 (Version 1)
Quarter: 2020Q4

REPORT INFORMATION
  Report Type: Spontaneous
  Country: US (occurrence: US)
  Receive Date: 20201229
  Receipt Date: 20201229
  Transmission Date: 20210114
  Serious: Yes (Hospitalization)
  Sender: FDA-Public Use
  Company Number: None

PATIENT
  Age: 41 Year
  Sex: Male
  Weight: 117 kg

DRUGS (5)
  1. BAMLANIVIMAB. [Suspect]
     Active Substance: BAMLANIVIMAB
     Indication: COVID-19
     Dosage: ?          OTHER FREQUENCY:1;?
     Route: 042
  2. LISINOPRIL 20MG DAILY [Concomitant]
     Dates: start: 20201015, end: 20201217
  3. GABAPENTIN 300 MG TID [Concomitant]
     Dates: start: 20201115, end: 20201217
  4. METFORMIN 500MG BID [Concomitant]
     Dates: start: 20201015, end: 20201217
  5. ATORVASTATIN 40MG DAILY [Concomitant]
     Dates: start: 20201015, end: 20201217

REACTIONS (3)
  - Oxygen saturation decreased [None]
  - Dyspnoea [None]
  - Fatigue [None]

NARRATIVE: CASE EVENT DATE: 20201222
